FAERS Safety Report 6803762-9 (Version None)
Quarter: 2010Q2

REPORT INFORMATION
  Report Type: 
  Country: None (occurrence: None)
  Receive Date: 20100628
  Receipt Date: 20100616
  Transmission Date: 20101027
  Serious: Yes (Other)
  Sender: FDA-Public Use
  Company Number: CH-PFIZER INC-2010075688

PATIENT
  Sex: Female

DRUGS (2)
  1. RELPAX [Suspect]
     Indication: OFF LABEL USE
     Dosage: 40 MG, 1X/DAY
     Dates: start: 20070101
  2. RELPAX [Suspect]
     Indication: BACK PAIN

REACTIONS (1)
  - DRUG DEPENDENCE [None]
